FAERS Safety Report 5877252-4 (Version None)
Quarter: 2008Q3

REPORT INFORMATION
  Report Type: 
  Country: None (occurrence: None)
  Receive Date: 20080903
  Receipt Date: 20080819
  Transmission Date: 20090109
  Serious: Yes (Hospitalization)
  Sender: FDA-Public Use
  Company Number: AEUSA200800187

PATIENT
  Age: 84 Year
  Sex: Female
  Weight: 70.7611 kg

DRUGS (1)
  1. GAMASTAN [Suspect]
     Indication: EXPOSURE TO COMMUNICABLE DISEASE
     Dosage: 1.4 ML;1X;IM
     Route: 030
     Dates: start: 20080709, end: 20080709

REACTIONS (14)
  - ATELECTASIS [None]
  - BACTERIAL INFECTION [None]
  - BLOOD CREATININE INCREASED [None]
  - BLOOD UREA INCREASED [None]
  - CONDITION AGGRAVATED [None]
  - COUGH [None]
  - CULTURE URINE POSITIVE [None]
  - HAEMATOCRIT DECREASED [None]
  - HAEMOGLOBIN DECREASED [None]
  - LYMPHOCYTE COUNT DECREASED [None]
  - NEUTROPHIL COUNT INCREASED [None]
  - PLEURAL EFFUSION [None]
  - PULMONARY EMBOLISM [None]
  - RED BLOOD CELL COUNT DECREASED [None]
